FAERS Safety Report 9341475 (Version 1)
Quarter: 2013Q2

REPORT INFORMATION
  Report Type: Report from Study
  Country: GB (occurrence: GB)
  Receive Date: 20130611
  Receipt Date: 20130611
  Transmission Date: 20140414
  Serious: Yes (Death, Hospitalization)
  Sender: FDA-Public Use
  Company Number: GB-BAYER-2012-058490

PATIENT
  Age: 71 Year
  Sex: Male

DRUGS (20)
  1. ALPHARADIN [Suspect]
     Indication: HORMONE-REFRACTORY PROSTATE CANCER
     Dosage: 50 KBQ/KG B.W. (1 IN 1 M)
     Route: 042
     Dates: start: 20111220, end: 20120501
  2. ALPHARADIN [Suspect]
     Indication: METASTASES TO BONE
  3. ASPIRIN [Suspect]
     Indication: THROMBOSIS PROPHYLAXIS
     Dosage: 75 MG, QD
     Route: 048
  4. ZOMETA [Concomitant]
     Indication: PROSTATE CANCER
     Dosage: UNK UNK, EVERY 4 WEEKS
     Route: 042
     Dates: start: 20120314
  5. MST [MORPHINE SULFATE] [Concomitant]
     Indication: PAIN
     Dosage: DAILY DOSE 60 MG
     Route: 048
     Dates: start: 20110519
  6. LANSOPRAZOLE [Concomitant]
     Indication: GASTRITIS PROPHYLAXIS
     Dosage: 15 MG, QD
     Route: 048
     Dates: start: 20110301
  7. LOSARTAN POTASSIUM [Concomitant]
     Indication: HYPERTENSION
     Dosage: 100 MG, QD
     Route: 048
     Dates: start: 20020705
  8. DOXAZOSIN MESILATE [Concomitant]
     Indication: HYPERTENSION
     Dosage: 4 MG, QD
     Route: 048
     Dates: start: 20050420
  9. AMITRIPTYLINE [Concomitant]
     Indication: PAIN
     Dosage: 25 MG, QD
     Dates: start: 20110519
  10. AMITRIPTYLINE [Concomitant]
     Indication: ANXIETY
  11. METOCLOPRAMIDE [Concomitant]
     Indication: NAUSEA
     Dosage: 10 MG, PRN
     Route: 048
     Dates: start: 201103
  12. ORAMORPH [Concomitant]
     Indication: BREAKTHROUGH PAIN
     Dosage: 10 MG, PRN
     Route: 048
     Dates: start: 20110509
  13. DIETHYLSTILBESTROL [Concomitant]
     Indication: PROSTATE CANCER
     Dosage: 3 MG, QD
     Route: 048
     Dates: start: 20071127
  14. ZOLADEX [Concomitant]
     Indication: PROSTATE CANCER
     Dosage: DAILY DOSE 10.8 MG, Q
     Route: 058
     Dates: start: 200701
  15. PARACETAMOL [Concomitant]
     Indication: BONE PAIN
     Dosage: UNK G, PRN
     Route: 048
     Dates: start: 20110509
  16. PREGABALIN [Concomitant]
     Indication: NEURALGIA
     Dosage: DAILY DOSE 600 MG
     Route: 048
     Dates: start: 20120320
  17. DENOSUMAB [Concomitant]
     Indication: PROSTATE CANCER
     Dosage: UNK UNK, EVERY 4 WEEKS
     Route: 058
     Dates: start: 20120314
  18. NAPROXEN [Concomitant]
     Indication: PAIN
     Dosage: UNK UNK, PRN
     Route: 048
     Dates: start: 20120214
  19. ABIRATERONE [Concomitant]
  20. PREDNISOLONE [Concomitant]

REACTIONS (4)
  - Rectal haemorrhage [Not Recovered/Not Resolved]
  - Thrombocytopenia [Not Recovered/Not Resolved]
  - Anaemia [Not Recovered/Not Resolved]
  - Malignant neoplasm progression [Fatal]
